FAERS Safety Report 5398515-5 (Version None)
Quarter: 2007Q3

REPORT INFORMATION
  Report Type: 
  Country: None (occurrence: None)
  Receive Date: 20070726
  Receipt Date: 20061109
  Transmission Date: 20080115
  Serious: No
  Sender: FDA-Public Use
  Company Number: US-AMGEN-KDL199959

PATIENT
  Sex: Female
  Weight: 54.5 kg

DRUGS (7)
  1. PROCRIT [Suspect]
     Indication: ANAEMIA OF MALIGNANT DISEASE
     Route: 058
     Dates: start: 20060929, end: 20061006
  2. LECITHIN [Concomitant]
     Dates: start: 20010101
  3. CALCIUM CHLORIDE [Concomitant]
     Dates: start: 20010101
  4. VITAMIN E [Concomitant]
     Dates: start: 20010101
  5. ASCORBIC ACID [Concomitant]
     Dates: start: 20010101
  6. OMEGA 3 [Concomitant]
     Dates: start: 20010101
  7. TPN [Concomitant]
     Dates: start: 20010101

REACTIONS (4)
  - INITIAL INSOMNIA [None]
  - INSOMNIA [None]
  - PRURITUS [None]
  - RASH VESICULAR [None]
